FAERS Safety Report 14560932 (Version 4)
Quarter: 2021Q4

REPORT INFORMATION
  Report Type: Report from Study
  Country: US (occurrence: None)
  Receive Date: 20180222
  Receipt Date: 20211202
  Transmission Date: 20220303
  Serious: Yes (Death, Hospitalization)
  Sender: FDA-Public Use
  Company Number: US-ROCHE-2061948

PATIENT
  Age: 78 Year
  Sex: Male
  Weight: 88.4 kg

DRUGS (3)
  1. ATEZOLIZUMAB [Suspect]
     Active Substance: ATEZOLIZUMAB
     Indication: Colorectal cancer metastatic
     Dosage: FOR 60 MINUTES
     Route: 042
     Dates: start: 20171213
  2. BEVACIZUMAB [Suspect]
     Active Substance: BEVACIZUMAB
     Indication: Colorectal cancer metastatic
     Dosage: FOR 60 MINUTES
     Route: 042
     Dates: start: 20171213
  3. CAPECITABINE [Suspect]
     Active Substance: CAPECITABINE
     Indication: Colorectal cancer metastatic
     Dosage: 14 DAYS OUT OF 21
     Route: 048
     Dates: start: 20171213

REACTIONS (4)
  - Death [Fatal]
  - Aspartate aminotransferase increased [Unknown]
  - Alanine aminotransferase increased [Unknown]
  - Myocarditis [Unknown]

NARRATIVE: CASE EVENT DATE: 20180105
